FAERS Safety Report 8510591-7 (Version None)
Quarter: 2012Q3

REPORT INFORMATION
  Report Type: 
  Country: None (occurrence: None)
  Receive Date: 20120709
  Receipt Date: 20120709
  Transmission Date: 20120928
  Serious: Yes (Other)
  Sender: FDA-Public Use
  Company Number: None

PATIENT
  Sex: Female
  Weight: 81.6475 kg

DRUGS (2)
  1. REVOLUTION 45 MG PFIZER [Suspect]
     Indication: FLEA INFESTATION
  2. REVOLUTION 45 MG PFIZER [Suspect]
     Indication: PROPHYLAXIS

REACTIONS (3)
  - URTICARIA [None]
  - DRUG DOSE OMISSION [None]
  - EXPOSURE VIA DIRECT CONTACT [None]
